FAERS Safety Report 4977865-8 (Version None)
Quarter: 2006Q2

REPORT INFORMATION
  Report Type: 
  Country: None (occurrence: None)
  Receive Date: 20060420
  Receipt Date: 20060405
  Transmission Date: 20061013
  Serious: Yes (Other)
  Sender: FDA-Public Use
  Company Number: DK-GLAXOSMITHKLINE-B0420161A

PATIENT
  Age: 65 Year
  Sex: Female

DRUGS (2)
  1. IMIGRAN [Suspect]
     Indication: MIGRAINE
  2. TRICYCLINE [Suspect]

REACTIONS (3)
  - DRUG INTERACTION [None]
  - JAUNDICE [None]
  - WEIGHT DECREASED [None]
